FAERS Safety Report 14364877 (Version 1)
Quarter: 2018Q1

REPORT INFORMATION
  Report Type: Spontaneous
  Country: US (occurrence: US)
  Receive Date: 20180108
  Receipt Date: 20180108
  Transmission Date: 20180509
  Serious: No
  Sender: FDA-Public Use
  Company Number: US-APOTEX-2017AP022468

PATIENT
  Sex: Female

DRUGS (1)
  1. FENTANYL TRANSDERMAL SYSTEM [Suspect]
     Active Substance: FENTANYL
     Indication: PRODUCT USED FOR UNKNOWN INDICATION
     Dosage: UNK, 1 PER 72 HOURS
     Route: 062

REACTIONS (3)
  - Product adhesion issue [Unknown]
  - Hyperhidrosis [Unknown]
  - Hot flush [Unknown]
